FAERS Safety Report 8189074-2 (Version None)
Quarter: 2012Q1

REPORT INFORMATION
  Report Type: 
  Country: None (occurrence: None)
  Receive Date: 20120307
  Receipt Date: 20120229
  Transmission Date: 20120608
  Serious: No
  Sender: FDA-Public Use
  Company Number: US-BIOGENIDEC-2012BI007769

PATIENT
  Sex: Female

DRUGS (3)
  1. TYSABRI [Suspect]
     Route: 042
     Dates: start: 20120225
  2. AVONEX [Concomitant]
     Indication: MULTIPLE SCLEROSIS
     Route: 030
     Dates: start: 20060210
  3. TYSABRI [Suspect]
     Indication: MULTIPLE SCLEROSIS
     Route: 042
     Dates: start: 20090319, end: 20110609

REACTIONS (12)
  - FRUSTRATION [None]
  - INFLUENZA LIKE ILLNESS [None]
  - HYPERHIDROSIS [None]
  - DRUG INEFFECTIVE [None]
  - STRESS [None]
  - SCIATICA [None]
  - PAIN IN EXTREMITY [None]
  - DEPRESSED MOOD [None]
  - FATIGUE [None]
  - WEIGHT DECREASED [None]
  - BURNS SECOND DEGREE [None]
  - ASTHENIA [None]
